FAERS Safety Report 4830293-8 (Version None)
Quarter: 2005Q4

REPORT INFORMATION
  Report Type: 
  Country: None (occurrence: None)
  Receive Date: 20051114
  Receipt Date: 20051028
  Transmission Date: 20060501
  Serious: Yes (Other)
  Sender: FDA-Public Use
  Company Number: USA0510112148

PATIENT
  Age: 51 Year
  Sex: Female

DRUGS (5)
  1. CYMBALTA [Suspect]
     Indication: ANXIETY DISORDER
     Dates: start: 20040101, end: 20050101
  2. LITHIUM [Concomitant]
  3. WELLBUTRIN [Concomitant]
  4. DIABETES MEDICATION [Concomitant]
  5. CHOLESTEROL MEDICATION [Concomitant]

REACTIONS (3)
  - FEAR [None]
  - ROAD TRAFFIC ACCIDENT [None]
  - VISUAL DISTURBANCE [None]
